FAERS Safety Report 5759992-0 (Version None)
Quarter: 2008Q2

REPORT INFORMATION
  Report Type: 
  Country: None (occurrence: None)
  Receive Date: 20080605
  Receipt Date: 20080521
  Transmission Date: 20081010
  Serious: No
  Sender: FDA-Public Use
  Company Number: US-BAYER-200823791NA

PATIENT
  Age: 69 Year
  Sex: Female
  Weight: 67 kg

DRUGS (2)
  1. MAGNEVIST [Suspect]
     Indication: NUCLEAR MAGNETIC RESONANCE IMAGING
     Route: 042
     Dates: start: 20080512, end: 20080512
  2. VALIUM [Concomitant]
     Indication: CLAUSTROPHOBIA
     Route: 048
     Dates: start: 20080512, end: 20080512

REACTIONS (1)
  - URTICARIA [None]
